FAERS Safety Report 7885795-7 (Version None)
Quarter: 2011Q4

REPORT INFORMATION
  Report Type: 
  Country: None (occurrence: None)
  Receive Date: 20111102
  Receipt Date: 20110628
  Transmission Date: 20120403
  Serious: No
  Sender: FDA-Public Use
  Company Number: US-AMGEN-USASP2011032931

PATIENT
  Age: 65 Year
  Sex: Male
  Weight: 152 kg

DRUGS (12)
  1. ENBREL [Suspect]
     Indication: PRODUCT USED FOR UNKNOWN INDICATION
     Dosage: 50 MG, QWK
     Route: 058
     Dates: start: 20110628
  2. CELEBREX [Concomitant]
  3. OMEPRAZOLE [Concomitant]
  4. METOCLOPRAM [Concomitant]
     Dosage: 10 MG, UNK
  5. EYE DROPS [Suspect]
  6. VITAMIN D [Suspect]
     Dosage: 400 IU, UNK
  7. DIOVAN [Concomitant]
     Dosage: 80 MG, UNK
  8. ASPIRIN [Concomitant]
     Dosage: 81 MG, UNK
  9. PREVACID [Concomitant]
     Dosage: 30 MG, UNK
  10. TIMOLOL MALEATE [Concomitant]
  11. MULTI-VITAMIN [Suspect]
  12. TRAVATAN [Concomitant]

REACTIONS (1)
  - DRY MOUTH [None]
